FAERS Safety Report 10333911 (Version 3)
Quarter: 2014Q4

REPORT INFORMATION
  Report Type: Report from Study
  Country: US (occurrence: US)
  Receive Date: 20140723
  Receipt Date: 20141015
  Transmission Date: 20150528
  Serious: Yes (Hospitalization, Other)
  Sender: FDA-Public Use
  Company Number: US-BIOGENIDEC-2014BI067864

PATIENT
  Age: 18 Year
  Sex: Male
  Weight: 67 kg

DRUGS (21)
  1. ALPROLIX [Concomitant]
     Active Substance: EFTRENONACOG ALFA
     Indication: HAEMORRHAGE PROPHYLAXIS
     Route: 042
     Dates: start: 20140627
  2. ALPROLIX [Concomitant]
     Active Substance: EFTRENONACOG ALFA
     Indication: POST PROCEDURAL SWELLING
     Dates: start: 20140707
  3. ALPROLIX [Concomitant]
     Active Substance: EFTRENONACOG ALFA
     Indication: FACTOR IX DEFICIENCY
     Dates: start: 20140712
  4. AMICAR [Concomitant]
     Active Substance: AMINOCAPROIC ACID
     Indication: FACTOR IX DEFICIENCY
     Route: 048
     Dates: start: 20101007
  5. RFIXFC [Suspect]
     Active Substance: EFTRENONACOG ALFA
     Indication: FACTOR IX DEFICIENCY
     Route: 042
     Dates: start: 20140707
  6. ALPROLIX [Concomitant]
     Active Substance: EFTRENONACOG ALFA
     Indication: HAEMORRHAGE PROPHYLAXIS
     Dates: start: 20140712
  7. ALPROLIX [Concomitant]
     Active Substance: EFTRENONACOG ALFA
     Indication: POST PROCEDURAL SWELLING
     Route: 042
     Dates: start: 20140627
  8. ALPROLIX [Concomitant]
     Active Substance: EFTRENONACOG ALFA
     Indication: HAEMORRHAGE PROPHYLAXIS
     Dates: start: 20140707
  9. ALPROLIX [Concomitant]
     Active Substance: EFTRENONACOG ALFA
     Indication: HAEMORRHAGE PROPHYLAXIS
     Route: 042
     Dates: start: 20140627
  10. ALPROLIX [Concomitant]
     Active Substance: EFTRENONACOG ALFA
     Indication: FACTOR IX DEFICIENCY
     Dates: start: 20140707
  11. ALPROLIX [Concomitant]
     Active Substance: EFTRENONACOG ALFA
     Indication: HAEMORRHAGE PROPHYLAXIS
     Dates: start: 20140708
  12. ALPROLIX [Concomitant]
     Active Substance: EFTRENONACOG ALFA
     Indication: HAEMORRHAGE PROPHYLAXIS
     Dates: start: 20140712
  13. ALPROLIX [Concomitant]
     Active Substance: EFTRENONACOG ALFA
     Indication: POST PROCEDURAL SWELLING
     Dates: start: 20140712
  14. ALPROLIX [Concomitant]
     Active Substance: EFTRENONACOG ALFA
     Indication: FACTOR IX DEFICIENCY
     Route: 042
     Dates: start: 20140627
  15. RFIXFC [Suspect]
     Active Substance: EFTRENONACOG ALFA
     Indication: FACTOR IX DEFICIENCY
     Route: 042
     Dates: start: 20140708
  16. ALPROLIX [Concomitant]
     Active Substance: EFTRENONACOG ALFA
     Indication: FACTOR IX DEFICIENCY
     Dates: start: 20140708
  17. ALPROLIX [Concomitant]
     Active Substance: EFTRENONACOG ALFA
     Indication: HAEMORRHAGE PROPHYLAXIS
     Dates: start: 20140708
  18. RFIXFC [Suspect]
     Active Substance: EFTRENONACOG ALFA
     Indication: FACTOR IX DEFICIENCY
     Route: 042
     Dates: start: 20110606, end: 20140626
  19. ALPROLIX [Concomitant]
     Active Substance: EFTRENONACOG ALFA
     Indication: HAEMORRHAGE PROPHYLAXIS
     Dates: start: 20140707
  20. ALPROLIX [Concomitant]
     Active Substance: EFTRENONACOG ALFA
     Indication: POST PROCEDURAL SWELLING
     Dates: start: 20140708
  21. RFIXFC [Suspect]
     Active Substance: EFTRENONACOG ALFA
     Indication: FACTOR IX DEFICIENCY
     Route: 042
     Dates: start: 20140712

REACTIONS (1)
  - Slipping rib syndrome [Recovered/Resolved]

NARRATIVE: CASE EVENT DATE: 20140707
